FAERS Safety Report 15742984 (Version 4)
Quarter: 2019Q1

REPORT INFORMATION
  Report Type: Spontaneous
  Country: JP (occurrence: JP)
  Receive Date: 20181220
  Receipt Date: 20190318
  Transmission Date: 20190417
  Serious: Yes (Death, Other)
  Sender: FDA-Public Use
  Company Number: JP-BRISTOL-MYERS SQUIBB COMPANY-BMS-2018-119746

PATIENT
  Age: 78 Year
  Sex: Male
  Weight: 55.5 kg

DRUGS (3)
  1. OPDIVO [Suspect]
     Active Substance: NIVOLUMAB
     Indication: METASTATIC RENAL CELL CARCINOMA
     Dosage: 153 MG/DAY, SINGLE
     Route: 041
     Dates: start: 20170331, end: 20170331
  2. VOTRIENT [Suspect]
     Active Substance: PAZOPANIB HYDROCHLORIDE
     Indication: METASTATIC RENAL CELL CARCINOMA
     Dosage: 400 MG/DAY
     Route: 065
     Dates: start: 20170817, end: 20170828
  3. OPDIVO [Suspect]
     Active Substance: NIVOLUMAB
     Indication: PRODUCT USED FOR UNKNOWN INDICATION
     Dosage: 150 MG/DAY
     Route: 041
     Dates: start: 20170414, end: 20170710

REACTIONS (5)
  - Dehydration [Fatal]
  - Pyrexia [Fatal]
  - Cardio-respiratory arrest [Fatal]
  - Malignant neoplasm progression [Fatal]
  - Renal impairment [Fatal]

NARRATIVE: CASE EVENT DATE: 20170825
